FAERS Safety Report 6025278-2 (Version None)
Quarter: 2008Q4

REPORT INFORMATION
  Report Type: 
  Country: None (occurrence: None)
  Receive Date: 20081229
  Receipt Date: 20081229
  Transmission Date: 20090506
  Serious: Yes (Other)
  Sender: FDA-Public Use
  Company Number: None

PATIENT
  Sex: Female
  Weight: 52.1637 kg

DRUGS (3)
  1. CIPROFLOXACIN [Suspect]
     Indication: CYSTITIS
     Dosage: 1  250 MG 2X A DAY PO
     Route: 048
     Dates: start: 20081007, end: 20081012
  2. CIPROFLOXACIN [Suspect]
     Indication: SINUSITIS
     Dosage: 1 500 MG 2X A DAY PO
     Route: 048
     Dates: start: 20081114, end: 20081121
  3. . [Concomitant]

REACTIONS (4)
  - ARTHRALGIA [None]
  - DYSSTASIA [None]
  - GAIT DISTURBANCE [None]
  - JOINT RANGE OF MOTION DECREASED [None]
